FAERS Safety Report 6761407-0 (Version None)
Quarter: 2010Q2

REPORT INFORMATION
  Report Type: 
  Country: None (occurrence: None)
  Receive Date: 20100608
  Receipt Date: 20100530
  Transmission Date: 20101027
  Serious: Yes (Life-Threatening, Other)
  Sender: FDA-Public Use
  Company Number: US-AMGEN-QUU415461

PATIENT
  Sex: Male

DRUGS (1)
  1. ENBREL [Suspect]
     Indication: PSORIATIC ARTHROPATHY
     Route: 058
     Dates: start: 20090615

REACTIONS (5)
  - ANAEMIA [None]
  - CARDIAC DISORDER [None]
  - CARDIAC PACEMAKER INSERTION [None]
  - LEUKAEMIA [None]
  - MYELODYSPLASTIC SYNDROME [None]
